FAERS Safety Report 6588359-0 (Version None)
Quarter: 2010Q1

REPORT INFORMATION
  Report Type: 
  Country: None (occurrence: None)
  Receive Date: 20100218
  Receipt Date: 20100212
  Transmission Date: 20100710
  Serious: Yes (Death, Hospitalization)
  Sender: FDA-Public Use
  Company Number: ES-ROCHE-685058

PATIENT
  Age: 66 Year
  Sex: Male

DRUGS (2)
  1. AVASTIN [Suspect]
     Route: 042
     Dates: start: 20090101, end: 20091001
  2. FOLFIRI REGIMEN [Suspect]
     Route: 065
     Dates: start: 20090101, end: 20091001

REACTIONS (2)
  - CEREBRAL HAEMORRHAGE [None]
  - ISCHAEMIC STROKE [None]
